FAERS Safety Report 5679583-X (Version None)
Quarter: 2008Q1

REPORT INFORMATION
  Report Type: 
  Country: None (occurrence: None)
  Receive Date: 20080321
  Receipt Date: 20080317
  Transmission Date: 20080703
  Serious: Yes (Death)
  Sender: FDA-Public Use
  Company Number: 2008JP001321

PATIENT
  Sex: Female
  Weight: 26 kg

DRUGS (3)
  1. VESICARE [Suspect]
     Indication: HYPERTONIC BLADDER
     Dosage: 5 MG, UID/QD, ORAL
     Route: 048
     Dates: start: 20070615, end: 20080124
  2. NORVASC (AMLODIPINE BESILATE) PER ORA NOS, 5 MG [Concomitant]
  3. LONGES (LISINOPRIL) PER ORAL NOS, 10 MG [Concomitant]

REACTIONS (1)
  - MARASMUS [None]
